FAERS Safety Report 5676733-6 (Version None)
Quarter: 2008Q1

REPORT INFORMATION
  Report Type: 
  Country: None (occurrence: None)
  Receive Date: 20080318
  Receipt Date: 20080310
  Transmission Date: 20080703
  Serious: Yes (Other)
  Sender: FDA-Public Use
  Company Number: 6041368

PATIENT
  Age: 82 Year
  Sex: Female

DRUGS (1)
  1. BISOPROLOL FUMARATE [Suspect]
     Indication: ANGINA PECTORIS
     Dosage: 1.25MG (1.25 MG,1 IN 1 D)
     Route: 048
     Dates: start: 20080131, end: 20080220

REACTIONS (1)
  - PHOTOSENSITIVITY REACTION [None]
